FAERS Safety Report 6892798-8 (Version None)
Quarter: 2010Q3

REPORT INFORMATION
  Report Type: 
  Country: None (occurrence: None)
  Receive Date: 20100731
  Receipt Date: 20080926
  Transmission Date: 20110219
  Serious: Yes (Other)
  Sender: FDA-Public Use
  Company Number: US-PFIZER INC-2008082220

PATIENT
  Sex: Female

DRUGS (3)
  1. NEURONTIN [Suspect]
  2. GLUCOPHAGE [Suspect]
  3. POTASSIUM [Suspect]

REACTIONS (1)
  - HYPERTENSION [None]
